FAERS Safety Report 21967319 (Version 1)
Quarter: 2023Q1

REPORT INFORMATION
  Report Type: Spontaneous
  Country: US (occurrence: None)
  Receive Date: 20230206
  Receipt Date: 20230206
  Transmission Date: 20230418
  Serious: Yes (Disabling, Other)
  Sender: FDA-Public Use
  Company Number: None

PATIENT
  Age: 5 Year
  Sex: Male
  Weight: 18.9 kg

DRUGS (2)
  1. SINGULAIR [Suspect]
     Active Substance: MONTELUKAST SODIUM
     Indication: Asthma
     Dosage: OTHER QUANTITY : 1 TABLET(S);?
     Route: 048
     Dates: start: 20230109, end: 20230203
  2. VITAMINS [Concomitant]
     Active Substance: VITAMINS

REACTIONS (12)
  - Ear swelling [None]
  - Erythema [None]
  - Flushing [None]
  - Autism spectrum disorder [None]
  - Agitation [None]
  - Aggression [None]
  - Tic [None]
  - Decreased appetite [None]
  - Hunger [None]
  - Nervousness [None]
  - Feeling abnormal [None]
  - Obsessive-compulsive disorder [None]

NARRATIVE: CASE EVENT DATE: 20230109
